FAERS Safety Report 5587735-2 (Version None)
Quarter: 2007Q4

REPORT INFORMATION
  Report Type: 
  Country: None (occurrence: None)
  Receive Date: 20071210
  Receipt Date: 20070608
  Transmission Date: 20080405
  Serious: Yes (Other)
  Sender: FDA-Public Use
  Company Number: SPV1-2007-03264

PATIENT
  Age: 48 Year
  Sex: Female
  Weight: 74.8 kg

DRUGS (3)
  1. ADDERALL 10 [Suspect]
     Indication: ATTENTION DEFICIT/HYPERACTIVITY DISORDER
     Dosage: 120 MG, 1X/DAY:QD, ORAL
     Route: 048
     Dates: start: 20030101, end: 20051201
  2. BUSPAR [Concomitant]
  3. ACIPHEX [Concomitant]

REACTIONS (2)
  - MYOCARDIAL INFARCTION [None]
  - OVERDOSE [None]
